FAERS Safety Report 16130934 (Version 1)
Quarter: 2019Q1

REPORT INFORMATION
  Report Type: Report from Study
  Country: TR (occurrence: TR)
  Receive Date: 20190328
  Receipt Date: 20190328
  Transmission Date: 20190418
  Serious: Yes (Death, Life-Threatening, Hospitalization)
  Sender: FDA-Public Use
  Company Number: IND-TR-009507513-1903USA009386

PATIENT
  Age: 56 Year
  Sex: Male

DRUGS (7)
  1. CIPRALEX [Concomitant]
     Active Substance: ESCITALOPRAM OXALATE
     Indication: DEPRESSION
     Dosage: 10 MILLIGRAM, PRN
     Route: 048
     Dates: end: 20170908
  2. DEXAMETHASONE. [Concomitant]
     Active Substance: DEXAMETHASONE
     Indication: BACK PAIN
     Dosage: 8 MILLIGRAM, BID
     Route: 048
     Dates: start: 20170727, end: 20170821
  3. DEXAMETHASONE. [Concomitant]
     Active Substance: DEXAMETHASONE
     Dosage: 8 MILLIGRAM, QD
     Route: 048
     Dates: start: 20170822, end: 20170905
  4. ZOLADEX [Concomitant]
     Active Substance: GOSERELIN ACETATE
     Indication: BILATERAL ORCHIDECTOMY
     Dosage: 10.8 MILLIGRAM, QD
     Route: 058
     Dates: end: 20170914
  5. OLAPARIB. [Suspect]
     Active Substance: OLAPARIB
     Indication: HORMONE-REFRACTORY PROSTATE CANCER
     Dosage: 300 MILLIGRAM, BID
     Route: 048
     Dates: start: 20170906, end: 20170914
  6. DEXAMETHASONE. [Concomitant]
     Active Substance: DEXAMETHASONE
     Dosage: 8 MILLIGRAM, QD
     Route: 048
     Dates: start: 20170906, end: 20170908
  7. CONTRAMAL [Concomitant]
     Active Substance: TRAMADOL HYDROCHLORIDE
     Indication: TUMOUR PAIN
     Dosage: 100 MILLIGRAM, BID
     Route: 048
     Dates: start: 20170812, end: 20170906

REACTIONS (3)
  - Neutropenia [Fatal]
  - Lung infection [Fatal]
  - Thrombocytopenia [Not Recovered/Not Resolved]

NARRATIVE: CASE EVENT DATE: 20170908
